FAERS Safety Report 5635777-0 (Version None)
Quarter: 2008Q1

REPORT INFORMATION
  Report Type: 
  Country: None (occurrence: None)
  Receive Date: 20080221
  Receipt Date: 20080213
  Transmission Date: 20080703
  Serious: Yes (Death, Other)
  Sender: FDA-Public Use
  Company Number: 114-20785-08020856

PATIENT

DRUGS (10)
  1. THALOMID [Suspect]
     Indication: MULTIPLE MYELOMA
     Dosage: 200 MG, DAYS 1-28, ORAL, DAYS 1-28, ORAL, 50 MG, DAYS 1-28; ORAL
     Route: 048
  2. DOXORUBICIN HCL [Suspect]
     Indication: MULTIPLE MYELOMA
     Dosage: 9 MG/M2, RAPID INFUSION ON DAYS; 1-4, INTRAVENOUS; 15 MG/M2, RAPID INFUSIONS ON DAYS 1-4; INTRAVENOU
     Route: 042
  3. DEXAMETHASONE TAB [Suspect]
     Indication: MULTIPLE MYELOMA
     Dosage: 40 MG, DAYS 1-4, 9-12, 17-20,
  4. VINCRISTINE [Suspect]
     Indication: MULTIPLE MYELOMA
     Dosage: 0.4 MG, RAPID INFUSION ON DAYS 1-4, INTRAVENOUS
     Route: 042
  5. ADRIAMYCIN PFS [Suspect]
     Indication: MULTIPLE MYELOMA
  6. MELPHALAN (MELPHALAN) [Suspect]
     Indication: MULTIPLE MYELOMA
     Dosage: 200 MG/M2; 1 OR 2 COURSES;
  7. CYCLOPHOSPHAMIDE [Suspect]
     Indication: MULTIPLE MYELOMA
     Dosage: 1000 MG/M2; DAY 1; INTRAVENOUS
     Route: 042
  8. G-CSF (GRANULOCYTE COLONY STIMULATING FACTOR) [Suspect]
     Indication: MULTIPLE MYELOMA
     Dosage: 5 MG/KG, BID;
  9. INTERFERON (INTERFERON) [Concomitant]
  10. HEPARIN [Concomitant]

REACTIONS (21)
  - ARRHYTHMIA [None]
  - CARDIOVASCULAR DISORDER [None]
  - COAGULOPATHY [None]
  - DISEASE PROGRESSION [None]
  - EMBOLISM VENOUS [None]
  - ENDOCRINE DISORDER [None]
  - EYE DISORDER [None]
  - GASTROINTESTINAL DISORDER [None]
  - HAEMORRHAGE [None]
  - HEARING IMPAIRED [None]
  - HYPERSENSITIVITY [None]
  - LIVER DISORDER [None]
  - LUNG DISORDER [None]
  - METABOLIC DISORDER [None]
  - MUSCULOSKELETAL DISORDER [None]
  - NERVOUS SYSTEM DISORDER [None]
  - PAIN [None]
  - RENAL DISORDER [None]
  - SKIN DISORDER [None]
  - UNEVALUABLE EVENT [None]
  - UROGENITAL DISORDER [None]
